FAERS Safety Report 10150232 (Version 3)
Quarter: 2014Q2

REPORT INFORMATION
  Report Type: Report from Study
  Country: US (occurrence: US)
  Receive Date: 20140502
  Receipt Date: 20140513
  Transmission Date: 20141212
  Serious: Yes (Other)
  Sender: FDA-Public Use
  Company Number: US-TEVA-466129USA

PATIENT
  Age: 54 Year
  Sex: Female

DRUGS (1)
  1. COPAXONE [Suspect]
     Indication: MULTIPLE SCLEROSIS
     Dates: start: 20050615

REACTIONS (6)
  - Convulsion [Unknown]
  - Loss of consciousness [Unknown]
  - Rib fracture [Unknown]
  - Fall [Unknown]
  - Immediate post-injection reaction [Unknown]
  - Product quality issue [Unknown]
